FAERS Safety Report 8505064 (Version 2)
Quarter: 2012Q4

REPORT INFORMATION
  Report Type: 
  Country: US (occurrence: US)
  Receive Date: 20120412
  Receipt Date: 20120906
  Transmission Date: 20130627
  Serious: No
  Sender: FDA-Public Use
  Company Number: US-BIOGENIDEC-2012BI011989

PATIENT
  Age: 28 Year
  Sex: Female

DRUGS (1)
  1. TYSABRI [Suspect]
     Indication: MULTIPLE SCLEROSIS
     Route: 042
     Dates: start: 20120312, end: 201207

REACTIONS (4)
  - Influenza like illness [Recovered/Resolved]
  - Throat tightness [Recovered/Resolved]
  - Dizziness [Recovered/Resolved]
  - Chest discomfort [Recovered/Resolved]
